FAERS Safety Report 9062042 (Version 1)
Quarter: 2013Q1

REPORT INFORMATION
  Report Type: Spontaneous
  Country: TH (occurrence: TH)
  Receive Date: 20130204
  Receipt Date: 20130204
  Transmission Date: 20140127
  Serious: Yes (Other)
  Sender: FDA-Public Use
  Company Number: PHHY2013TH007821

PATIENT
  Sex: 0

DRUGS (1)
  1. IMATINIB [Suspect]
     Indication: GASTROINTESTINAL STROMAL TUMOUR
     Dosage: UNK UKN, UNK

REACTIONS (6)
  - Drug-induced liver injury [Unknown]
  - Hepatic steatosis [Unknown]
  - Hepatocellular injury [Unknown]
  - Metastasis [Unknown]
  - Neoplasm recurrence [Unknown]
  - Hepatitis [Unknown]
